FAERS Safety Report 8774130 (Version 1)
Quarter: 2012Q4

REPORT INFORMATION
  Report Type: 
  Country: GB (occurrence: GB)
  Receive Date: 20120907
  Receipt Date: 20120907
  Transmission Date: 20130627
  Serious: Yes (Disabling)
  Sender: FDA-Public Use
  Company Number: GB-WATSON-2012-15564

PATIENT
  Age: 33 Year
  Sex: Female
  Weight: 60.32 kg

DRUGS (1)
  1. SERTRALINE HYDROCHLORIDE (UNKNOWN) [Suspect]
     Indication: DEPRESSED MOOD
     Dosage: 50 mg weaned from 50mg to 0mg over 8 weeks
     Route: 048
     Dates: start: 20111001, end: 20120301

REACTIONS (9)
  - Myalgia [Unknown]
  - Eye pain [Unknown]
  - Migraine [Unknown]
  - Panic attack [Unknown]
  - Arthralgia [Unknown]
  - Chest pain [Unknown]
  - Paraesthesia [Unknown]
  - Hypoaesthesia [Unknown]
  - Withdrawal syndrome [Unknown]
